FAERS Safety Report 7908508-9 (Version None)
Quarter: 2011Q4

REPORT INFORMATION
  Report Type: 
  Country: None (occurrence: None)
  Receive Date: 20111111
  Receipt Date: 20111101
  Transmission Date: 20120403
  Serious: Yes (Hospitalization, Other)
  Sender: FDA-Public Use
  Company Number: US-BAYER-2011-019297

PATIENT
  Age: 48 Year
  Sex: Female
  Weight: 84 kg

DRUGS (5)
  1. METOPROLOL [Concomitant]
     Indication: BLOOD PRESSURE ABNORMAL
     Dosage: UNK
     Dates: start: 20080601, end: 20090101
  2. LIPITOR [Concomitant]
     Dosage: UNK
     Dates: start: 20080101, end: 20100101
  3. KLOR-CON [Concomitant]
     Dosage: UNK
     Dates: start: 20080101, end: 20090101
  4. TRIAMTERENE AND HYDROCHLOROTHIAZIDE [Concomitant]
     Dosage: UNK
     Dates: start: 20080101, end: 20090101
  5. YAZ [Suspect]
     Indication: MENORRHAGIA
     Dosage: UNK
     Dates: start: 20081223, end: 20090204

REACTIONS (12)
  - MYOCARDIAL INFARCTION [None]
  - INJURY [None]
  - ANXIETY [None]
  - CHEST DISCOMFORT [None]
  - ANTIBIOTIC RESISTANT STAPHYLOCOCCUS TEST POSITIVE [None]
  - CIRCULATORY COLLAPSE [None]
  - EMOTIONAL DISTRESS [None]
  - ARTERIAL THROMBOSIS [None]
  - GENERAL PHYSICAL HEALTH DETERIORATION [None]
  - CHEST PAIN [None]
  - SYNCOPE [None]
  - PAIN [None]
